FAERS Safety Report 23839587 (Version 2)
Quarter: 2024Q2

REPORT INFORMATION
  Report Type: Report from Study
  Country: US (occurrence: US)
  Receive Date: 20240510
  Receipt Date: 20240528
  Transmission Date: 20240716
  Serious: Yes (Death, Other)
  Sender: FDA-Public Use
  Company Number: US-ACADIA PHARMACEUTICALS INC.-ACA-2024-PIM-001917

PATIENT
  Sex: Male

DRUGS (10)
  1. NUPLAZID [Suspect]
     Active Substance: PIMAVANSERIN TARTRATE
     Indication: Hallucination
     Dosage: 34 MILLIGRAM, QD
     Route: 048
     Dates: start: 20210107, end: 20240410
  2. NUPLAZID [Suspect]
     Active Substance: PIMAVANSERIN TARTRATE
     Indication: Delusion
  3. NUPLAZID [Suspect]
     Active Substance: PIMAVANSERIN TARTRATE
     Indication: Parkinson^s disease
  4. CARBIDOPA\LEVODOPA [Concomitant]
     Active Substance: CARBIDOPA\LEVODOPA
  5. QUETIAPINE [Concomitant]
     Active Substance: QUETIAPINE
  6. SIMVASTATIN [Concomitant]
     Active Substance: SIMVASTATIN
  7. ALLOPURINOL [Concomitant]
     Active Substance: ALLOPURINOL
  8. DORZOLAMIDE [Concomitant]
     Active Substance: DORZOLAMIDE
  9. RIVASTIGMINE [Concomitant]
     Active Substance: RIVASTIGMINE
  10. LATANOPROST [Concomitant]
     Active Substance: LATANOPROST

REACTIONS (1)
  - Parkinson^s disease [Recovered/Resolved]
